FAERS Safety Report 10417567 (Version 2)
Quarter: 2014Q4

REPORT INFORMATION
  Report Type: Spontaneous
  Country: US (occurrence: US)
  Receive Date: 20140829
  Receipt Date: 20141006
  Transmission Date: 20150528
  Serious: No
  Sender: FDA-Public Use
  Company Number: US-009507513-1408USA015148

PATIENT
  Age: 16 Year
  Sex: Female
  Weight: 61.22 kg

DRUGS (4)
  1. NEXPLANON [Suspect]
     Active Substance: ETONOGESTREL
     Indication: CONTRACEPTION
     Dosage: 1 ROD FOR 3 YEARS, SUBDERMAL UPPER LEFT ARM
     Route: 059
     Dates: start: 20140602
  2. NEXPLANON [Suspect]
     Active Substance: ETONOGESTREL
     Indication: MIGRAINE
  3. VITAMINS (UNSPECIFIED) [Concomitant]
     Active Substance: VITAMINS
     Dosage: EVERYDAY
  4. HYDROGEN PEROXIDE. [Concomitant]
     Active Substance: HYDROGEN PEROXIDE
     Dosage: FOOD GRADE HYRDOGEN PEROXIDE DILUTED IN WATER

REACTIONS (2)
  - Implant site pain [Unknown]
  - Drug administration error [Unknown]

NARRATIVE: CASE EVENT DATE: 20140602
